FAERS Safety Report 19817335 (Version 1)
Quarter: 2021Q3

REPORT INFORMATION
  Report Type: Spontaneous
  Country: US (occurrence: US)
  Receive Date: 20210910
  Receipt Date: 20210910
  Transmission Date: 20211014
  Serious: No
  Sender: FDA-Public Use
  Company Number: US-PAIPHARMA-2021-US-000304

PATIENT
  Sex: Female

DRUGS (1)
  1. LACTULOSE SOLUTION USP, AF [Suspect]
     Active Substance: LACTULOSE
     Indication: PRODUCT USED FOR UNKNOWN INDICATION
     Route: 065

REACTIONS (1)
  - Drug ineffective [Not Recovered/Not Resolved]
